FAERS Safety Report 5787246-5 (Version None)
Quarter: 2008Q2

REPORT INFORMATION
  Report Type: 
  Country: None (occurrence: None)
  Receive Date: 20080625
  Receipt Date: 20070904
  Transmission Date: 20081010
  Serious: No
  Sender: FDA-Public Use
  Company Number: US-ASTRAZENECA-2007UW20883

PATIENT
  Age: 55 Year
  Sex: Male
  Weight: 86.2 kg

DRUGS (4)
  1. PULMICORT FLEXHALER [Suspect]
     Indication: HYPERSENSITIVITY
     Route: 055
     Dates: start: 20070801
  2. PULMICORT FLEXHALER [Suspect]
     Indication: ASTHMA
     Route: 055
     Dates: start: 20070801
  3. ALBUTEROL [Concomitant]
  4. EPINEPHRINE [Concomitant]

REACTIONS (1)
  - CHEST DISCOMFORT [None]
